FAERS Safety Report 17667762 (Version 1)
Quarter: 2020Q2

REPORT INFORMATION
  Report Type: Spontaneous
  Country: US (occurrence: US)
  Receive Date: 20200414
  Receipt Date: 20200414
  Transmission Date: 20200713
  Serious: No
  Sender: FDA-Public Use
  Company Number: US-JNJFOC-20200414571

PATIENT
  Age: 30 Year
  Sex: Male

DRUGS (2)
  1. TREMFYA [Suspect]
     Active Substance: GUSELKUMAB
     Indication: PRODUCT USED FOR UNKNOWN INDICATION
     Route: 058
     Dates: start: 201907
  2. TREMFYA [Suspect]
     Active Substance: GUSELKUMAB

REACTIONS (3)
  - Incorrect dose administered [Unknown]
  - Product dose omission [Unknown]
  - Off label use [Unknown]

NARRATIVE: CASE EVENT DATE: 201907
